FAERS Safety Report 10016791 (Version 1)
Quarter: 2014Q1

REPORT INFORMATION
  Report Type: Spontaneous
  Country: CA (occurrence: CA)
  Receive Date: 20140318
  Receipt Date: 20140318
  Transmission Date: 20141002
  Serious: Yes (Other)
  Sender: FDA-Public Use
  Company Number: CHPA2014CA003828

PATIENT
  Age: 75 Year
  Sex: Male

DRUGS (11)
  1. MAALOX [Suspect]
     Indication: ABDOMINAL DISCOMFORT
     Dosage: 2 DF, TID
     Route: 048
  2. MAALOX [Suspect]
     Indication: BOWEL MOVEMENT IRREGULARITY
     Dosage: 2 DF, TID
     Route: 048
  3. MAALOX [Suspect]
     Indication: OFF LABEL USE
  4. MAALOX ANTI-GAS EXTRA-STRENGTH [Suspect]
     Indication: ABDOMINAL DISCOMFORT
     Dosage: 2 TSP, TID
     Route: 048
  5. MAALOX ANTI-GAS EXTRA-STRENGTH [Suspect]
     Indication: BOWEL MOVEMENT IRREGULARITY
  6. MAALOX ANTI-GAS EXTRA-STRENGTH [Suspect]
     Indication: OFF LABEL USE
  7. MAALOX ANTI-GAS EXTRA STR PEPPERMINT [Suspect]
     Indication: ABDOMINAL DISCOMFORT
     Dosage: 2 TSP, TID
     Route: 048
  8. MAALOX ANTI-GAS EXTRA STR PEPPERMINT [Suspect]
     Indication: BOWEL MOVEMENT IRREGULARITY
  9. MAALOX ANTI-GAS EXTRA STR PEPPERMINT [Suspect]
     Indication: OFF LABEL USE
  10. MILK OF MAGNESIA [Concomitant]
     Indication: ABDOMINAL DISCOMFORT
     Dosage: EVERY OTHER DAY
     Route: 065
  11. MILK OF MAGNESIA [Concomitant]
     Indication: BOWEL MOVEMENT IRREGULARITY

REACTIONS (2)
  - Coeliac disease [Recovering/Resolving]
  - Therapeutic response unexpected [Unknown]
